FAERS Safety Report 5767422-8 (Version None)
Quarter: 2008Q2

REPORT INFORMATION
  Report Type: 
  Country: None (occurrence: None)
  Receive Date: 20080612
  Receipt Date: 20080604
  Transmission Date: 20081010
  Serious: Yes (Other)
  Sender: FDA-Public Use
  Company Number: SE-BAYER-200819505GPV

PATIENT
  Age: 26 Year
  Sex: Female
  Weight: 63 kg

DRUGS (1)
  1. BETAFERON [Suspect]
     Indication: MULTIPLE SCLEROSIS
     Route: 058
     Dates: start: 20070628, end: 20080524

REACTIONS (1)
  - INJECTION SITE REACTION [None]
